FAERS Safety Report 23682534 (Version 1)
Quarter: 2024Q1

REPORT INFORMATION
  Report Type: Spontaneous
  Country: JP (occurrence: JP)
  Receive Date: 20240328
  Receipt Date: 20240328
  Transmission Date: 20240410
  Serious: Yes (Other)
  Sender: FDA-Public Use
  Company Number: JP-JAZZ PHARMACEUTICALS-2024-JP-005083

PATIENT
  Age: 37 Year
  Sex: Male

DRUGS (1)
  1. DEFITELIO [Suspect]
     Active Substance: DEFIBROTIDE SODIUM
     Indication: Venoocclusive liver disease
     Dosage: UNK
     Route: 042

REACTIONS (6)
  - Acute kidney injury [Unknown]
  - Hepatic encephalopathy [Recovering/Resolving]
  - Hepatitis fulminant [Unknown]
  - Metabolic acidosis [Unknown]
  - Hyperammonaemia [Unknown]
  - Multiple organ dysfunction syndrome [Unknown]
